FAERS Safety Report 9091203 (Version 2)
Quarter: 2013Q2

REPORT INFORMATION
  Report Type: Spontaneous
  Country: US (occurrence: US)
  Receive Date: 20130131
  Receipt Date: 20130410
  Transmission Date: 20140414
  Serious: Yes (Other)
  Sender: FDA-Public Use
  Company Number: US-PFIZER INC-2013040606

PATIENT
  Sex: Female

DRUGS (10)
  1. LYRICA [Suspect]
     Indication: NERVOUS SYSTEM DISORDER
     Dosage: 150 MG, 2X/DAY
  2. ZYLOPRIM [Concomitant]
     Indication: GOUT
     Dosage: 100 MG, DAILY AT NIGHT
  3. RANITIDINE [Concomitant]
     Indication: GASTROOESOPHAGEAL REFLUX DISEASE
     Dosage: 150 MG, DAILY
  4. BABY ASPIRIN [Concomitant]
     Dosage: 81 MG DAILY
  5. LIPITOR [Concomitant]
     Indication: BLOOD CHOLESTEROL ABNORMAL
     Dosage: 5 MG DAILY
  6. ALPHA LIPOIC ACID [Concomitant]
     Dosage: UNK, 2X/DAY (ONCE IN MORNING AND ONCE AT NIGHT)
  7. FUROSEMIDE [Concomitant]
     Indication: BLOOD PRESSURE ABNORMAL
     Dosage: 20 MG DAILY
  8. LISINOPRIL [Concomitant]
     Indication: BLOOD PRESSURE ABNORMAL
     Dosage: 20 MG DAILY
  9. LEVOFLOXACIN [Concomitant]
     Indication: THYROID DISORDER
     Dosage: 88 UG DAILY
  10. MULTIVITAMINS [Concomitant]
     Indication: VITAMIN SUPPLEMENTATION
     Dosage: UNK, DAILY

REACTIONS (1)
  - Nephropathy [Unknown]
